FAERS Safety Report 8401141-4 (Version None)
Quarter: 2012Q2

REPORT INFORMATION
  Report Type: 
  Country: None (occurrence: None)
  Receive Date: 20120525
  Receipt Date: 20120514
  Transmission Date: 20120825
  Serious: Yes (Other)
  Sender: FDA-Public Use
  Company Number: 1290349

PATIENT
  Age: 7 Year
  Sex: Female

DRUGS (2)
  1. BLEOMYCIN SULFATE [Suspect]
     Indication: CRANIOPHARYNGIOMA
     Dosage: 2 MG THREE TIMES WEEKLY, INTRATUMOR
     Route: 036
  2. SODIUM CHLORIDE [Concomitant]

REACTIONS (2)
  - PERITUMOURAL OEDEMA [None]
  - HYPOPITUITARISM [None]
